FAERS Safety Report 9601755 (Version 1)
Quarter: 2013Q4

REPORT INFORMATION
  Report Type: Spontaneous
  Country: GB (occurrence: None)
  Receive Date: 20131002
  Receipt Date: 20131002
  Transmission Date: 20140711
  Serious: Yes (Life-Threatening, Other)
  Sender: FDA-Public Use
  Company Number: KAD201309-001229

PATIENT
  Age: 50 Year
  Sex: Male

DRUGS (3)
  1. RIBAVIRIN (RIBAVIRIN) [Suspect]
     Indication: HEPATITIS C
     Route: 048
     Dates: start: 20121101
  2. PEGINTERFERON ALFA-2B [Suspect]
     Indication: HEPATITIS C
     Route: 058
     Dates: start: 20121101
  3. INCIVO (TELAPREVIR) [Suspect]
     Indication: HEPATITIS C
     Dates: start: 20121101, end: 20130116

REACTIONS (7)
  - Nausea [None]
  - Pruritus generalised [None]
  - Rash [None]
  - Suicidal ideation [None]
  - Dysgeusia [None]
  - Vomiting [None]
  - Agitation [None]
